FAERS Safety Report 14672503 (Version 2)
Quarter: 2018Q3

REPORT INFORMATION
  Report Type: Report from Study
  Country: CA (occurrence: CA)
  Receive Date: 20180323
  Receipt Date: 20180709
  Transmission Date: 20181010
  Serious: Yes (Other)
  Sender: FDA-Public Use
  Company Number: CA-ROCHE-2090815

PATIENT
  Sex: Female

DRUGS (12)
  1. ACCUPRIL [Concomitant]
     Active Substance: QUINAPRIL HYDROCHLORIDE
  2. OLOPATADINE. [Concomitant]
     Active Substance: OLOPATADINE
  3. ACETYLSALICYLIC ACID [Concomitant]
     Active Substance: ASPIRIN
     Route: 065
  4. ACTEMRA [Suspect]
     Active Substance: TOCILIZUMAB
     Dosage: INFUSION #25
     Route: 042
     Dates: start: 20180312
  5. PREDNISONE. [Concomitant]
     Active Substance: PREDNISONE
  6. ACTEMRA [Suspect]
     Active Substance: TOCILIZUMAB
     Indication: RHEUMATOID ARTHRITIS
     Dosage: INITIAL DOSING DETAILS NOT PROVIDED
     Route: 042
  7. SINGULAIR [Concomitant]
     Active Substance: MONTELUKAST SODIUM
  8. CRANBERRY. [Concomitant]
     Active Substance: CRANBERRY
  9. CALCIUM CARBONATE. [Concomitant]
     Active Substance: CALCIUM CARBONATE
  10. ACTEMRA [Suspect]
     Active Substance: TOCILIZUMAB
     Route: 042
     Dates: start: 20160112
  11. SANDOZ RABEPRAZOLE [Concomitant]
     Active Substance: RABEPRAZOLE
  12. CETIRIZINE [Concomitant]
     Active Substance: CETIRIZINE HYDROCHLORIDE

REACTIONS (2)
  - Humerus fracture [Unknown]
  - Fall [Unknown]
